FAERS Safety Report 16117377 (Version 1)
Quarter: 2019Q1

REPORT INFORMATION
  Report Type: Spontaneous
  Country: US (occurrence: US)
  Receive Date: 20190326
  Receipt Date: 20190326
  Transmission Date: 20190418
  Serious: No
  Sender: FDA-Public Use
  Company Number: US-BAYER-2019-058788

PATIENT
  Age: 47 Year
  Sex: Male
  Weight: 95 kg

DRUGS (2)
  1. DULCOLAX (BISACODYL) [Concomitant]
     Active Substance: BISACODYL
  2. MIRALAX [Suspect]
     Active Substance: POLYETHYLENE GLYCOL 3350
     Route: 048

REACTIONS (3)
  - Off label use [None]
  - Wrong technique in product usage process [None]
  - Product use in unapproved indication [None]
